FAERS Safety Report 20643229 (Version 8)
Quarter: 2022Q3

REPORT INFORMATION
  Report Type: Report from Study
  Country: JP (occurrence: JP)
  Receive Date: 20220328
  Receipt Date: 20220906
  Transmission Date: 20221027
  Serious: Yes (Death, Other)
  Sender: FDA-Public Use
  Company Number: JP-TAKEDA-2021TJP115312

PATIENT
  Age: 57 Year
  Sex: Male

DRUGS (33)
  1. CABOZANTINIB [Suspect]
     Active Substance: CABOZANTINIB
     Indication: Renal cell carcinoma
     Dosage: 60 MG, QD
     Route: 048
     Dates: start: 20210915, end: 20210927
  2. CABOZANTINIB [Suspect]
     Active Substance: CABOZANTINIB
     Dosage: 40 MG, QD
     Route: 048
     Dates: start: 20210928, end: 2022
  3. CABOZANTINIB [Suspect]
     Active Substance: CABOZANTINIB
     Dosage: 40 MG, BID
     Route: 048
     Dates: start: 2022, end: 2022
  4. CABOZANTINIB [Suspect]
     Active Substance: CABOZANTINIB
     Dosage: 40 MG, QD
     Route: 048
     Dates: start: 20220308, end: 20220320
  5. DENOSUMAB [Concomitant]
     Active Substance: DENOSUMAB
     Indication: Renal cell carcinoma
     Dosage: 120 MG, Q4WEEKS
     Route: 058
     Dates: start: 20210830
  6. DENOSUMAB [Concomitant]
     Active Substance: DENOSUMAB
     Indication: Metastases to bone
     Dosage: 120 MILLIGRAM, Q4WEEKS
     Route: 058
     Dates: start: 20210830, end: 20220307
  7. BILASTINE [Concomitant]
     Active Substance: BILASTINE
     Indication: Rash
     Dosage: 20 MILLIGRAM, QD
     Route: 048
     Dates: start: 20210104
  8. BILASTINE [Concomitant]
     Active Substance: BILASTINE
     Indication: Rash
  9. CELECOXIB [Concomitant]
     Active Substance: CELECOXIB
     Indication: Analgesic therapy
     Dosage: 100 MILLIGRAM, BID
     Route: 048
     Dates: start: 20210125
  10. CELECOXIB [Concomitant]
     Active Substance: CELECOXIB
     Indication: Analgesic therapy
  11. REBAMIPIDE [Concomitant]
     Active Substance: REBAMIPIDE
     Indication: Prophylaxis
     Dosage: 100 MILLIGRAM, BID
     Route: 048
     Dates: start: 20210125
  12. SODIUM CHLORIDE [Concomitant]
     Active Substance: SODIUM CHLORIDE
     Indication: Hyponatraemia
     Dosage: 3 GRAM, TID
     Route: 048
     Dates: start: 20201013
  13. CALCIUM CARBONATE\CHOLECALCIFEROL\MAGNESIUM CARBONATE [Concomitant]
     Active Substance: CALCIUM CARBONATE\CHOLECALCIFEROL\MAGNESIUM CARBONATE
     Indication: Prophylaxis
     Dosage: 2 DOSAGE FORM, QD
     Route: 048
     Dates: start: 20210830
  14. VOALLA [Concomitant]
     Indication: Rash
     Dosage: UNK
     Route: 050
     Dates: start: 20210510
  15. VOALLA [Concomitant]
     Indication: Rash
  16. GLYCOSAMINOGLYCANS [Concomitant]
     Active Substance: GLYCOSAMINOGLYCANS
     Indication: Rash
     Dosage: UNK
     Route: 050
     Dates: start: 20210510
  17. GLYCOSAMINOGLYCANS [Concomitant]
     Active Substance: GLYCOSAMINOGLYCANS
     Indication: Rash
  18. BROMPERIDOL [Concomitant]
     Active Substance: BROMPERIDOL
     Indication: Schizophrenia
     Dosage: 3 MG, TID
     Route: 048
  19. BROMPERIDOL [Concomitant]
     Active Substance: BROMPERIDOL
     Dosage: 3 MILLIGRAM, TID
     Route: 048
  20. RISPERDAL [Concomitant]
     Active Substance: RISPERIDONE
     Indication: Schizophrenia
     Dosage: 2 MG, TID
     Route: 048
  21. RISPERDAL [Concomitant]
     Active Substance: RISPERIDONE
     Dosage: 2 MILLIGRAM, TID
     Route: 048
  22. AKINETON [Concomitant]
     Active Substance: BIPERIDEN HYDROCHLORIDE
     Indication: Schizophrenia
     Dosage: 1 MG, TID
     Route: 048
  23. AKINETON [Concomitant]
     Active Substance: BIPERIDEN HYDROCHLORIDE
     Dosage: 1 MILLIGRAM, TID
     Route: 048
  24. S.m. [Concomitant]
     Indication: Prophylaxis
     Dosage: 1 {DF}, TID
     Route: 048
  25. S.m. [Concomitant]
     Dosage: 1 DOSAGE FORM, TID
     Route: 048
  26. MOSAPRIDE CITRATE [Concomitant]
     Active Substance: MOSAPRIDE CITRATE
     Indication: Prophylaxis
     Dosage: 5 MG, TID
     Route: 048
  27. MOSAPRIDE CITRATE [Concomitant]
     Active Substance: MOSAPRIDE CITRATE
     Dosage: 5 MILLIGRAM, TID
     Route: 048
  28. SOLANAX [Concomitant]
     Active Substance: ALPRAZOLAM
     Indication: Schizophrenia
     Dosage: 0.8 MG, QD
     Route: 048
  29. SOLANAX [Concomitant]
     Active Substance: ALPRAZOLAM
     Dosage: 0.8 MILLIGRAM, QD
     Route: 048
  30. ETIZOLAM [Concomitant]
     Active Substance: ETIZOLAM
     Indication: Schizophrenia
     Dosage: 0.5 MG, QD
     Route: 048
  31. ETIZOLAM [Concomitant]
     Active Substance: ETIZOLAM
     Dosage: 0.5 MILLIGRAM, QD
     Route: 048
  32. SENNA [Concomitant]
     Active Substance: SENNA LEAF\SENNOSIDES\SENNOSIDES A AND B
     Indication: Constipation
     Dosage: 160 MG, QD
     Route: 048
  33. SENNA [Concomitant]
     Active Substance: SENNA LEAF\SENNOSIDES\SENNOSIDES A AND B
     Dosage: 160 MILLIGRAM, QD
     Route: 048

REACTIONS (8)
  - Death [Fatal]
  - Physical deconditioning [Not Recovered/Not Resolved]
  - Haemoglobin decreased [Not Recovered/Not Resolved]
  - Palmar-plantar erythrodysaesthesia syndrome [Not Recovered/Not Resolved]
  - Hyponatraemia [Not Recovered/Not Resolved]
  - Decreased appetite [Not Recovered/Not Resolved]
  - Inappropriate schedule of product administration [Unknown]
  - Overdose [Unknown]

NARRATIVE: CASE EVENT DATE: 20210927
